FAERS Safety Report 10364080 (Version 1)
Quarter: 2014Q3

REPORT INFORMATION
  Report Type: Spontaneous
  Country: GB (occurrence: GB)
  Receive Date: 20140806
  Receipt Date: 20140806
  Transmission Date: 20150326
  Serious: Yes (Death, Hospitalization)
  Sender: FDA-Public Use
  Company Number: PHHY2014GB094332

PATIENT
  Age: 65 Year
  Sex: Male

DRUGS (18)
  1. SPIROLACTON [Concomitant]
  2. DOXYCYCLINE. [Concomitant]
     Active Substance: DOXYCYCLINE
  3. VENTOLIN//SALBUTAMOL [Concomitant]
  4. OMEPRAZOLE. [Concomitant]
     Active Substance: OMEPRAZOLE
  5. WARFARIN [Concomitant]
     Active Substance: WARFARIN
  6. IVABRADINE [Suspect]
     Active Substance: IVABRADINE
     Dosage: 5 MG, UNK
     Route: 048
     Dates: start: 20140630
  7. BISOPROLOL [Concomitant]
     Active Substance: BISOPROLOL
  8. FLUCLOXACILLIN [Concomitant]
     Active Substance: FLUCLOXACILLIN
  9. NICORANDIL [Concomitant]
     Active Substance: NICORANDIL
  10. SPIRIVA [Concomitant]
     Active Substance: TIOTROPIUM BROMIDE MONOHYDRATE
  11. BUMETANIDE. [Concomitant]
     Active Substance: BUMETANIDE
  12. NITROLINGUAL [Concomitant]
     Active Substance: NITROGLYCERIN
  13. PERINDOPRIL [Concomitant]
     Active Substance: PERINDOPRIL
  14. SIMVASTATIN. [Concomitant]
     Active Substance: SIMVASTATIN
  15. AZITHROMYCIN [Suspect]
     Active Substance: AZITHROMYCIN ANHYDROUS
     Dosage: 250 MG, UNK
     Route: 048
     Dates: start: 20130630
  16. LORATADINE. [Concomitant]
     Active Substance: LORATADINE
  17. PREDNISOLONE. [Concomitant]
     Active Substance: PREDNISOLONE
  18. SERETIDE [Concomitant]
     Active Substance: FLUTICASONE FUROATE\SALMETEROL XINAFOATE

REACTIONS (2)
  - Death [Fatal]
  - Arrhythmia [Not Recovered/Not Resolved]
